FAERS Safety Report 25522656 (Version 13)
Quarter: 2025Q4

REPORT INFORMATION
  Report Type: Report from Study
  Country: EU (occurrence: EU)
  Receive Date: 20250707
  Receipt Date: 20251114
  Transmission Date: 20260117
  Serious: Yes (Hospitalization)
  Sender: ABBVIE
  Company Number: EU-ABBVIE-6351789

PATIENT
  Age: 73 Year
  Sex: Male

DRUGS (12)
  1. FOSCARBIDOPA\FOSLEVODOPA [Suspect]
     Active Substance: FOSCARBIDOPA\FOSLEVODOPA
     Indication: Parkinson^s disease
     Dosage: HIGH 0.33ML INCREASED 0.34ML?BASE 0.36ML INCREASED 0.37ML?FIRST ADMIN DATE: 2025
     Route: 058
  2. FOSCARBIDOPA\FOSLEVODOPA [Suspect]
     Active Substance: FOSCARBIDOPA\FOSLEVODOPA
     Dosage: DOSE: 1 VIAL, FREQUENCY: PRODUODOPA BASE RATE.?LAST ADMINISTRATION DATE: JUN 2025
     Route: 058
     Dates: start: 20250625
  3. FOSCARBIDOPA\FOSLEVODOPA [Suspect]
     Active Substance: FOSCARBIDOPA\FOSLEVODOPA
     Dosage: LOW RATE INCREASED FROM 0.20ML TO 0.22ML ?BASE INCREASED FROM 0.25ML TO 0.27ML AND HIGH INCREASED...
     Route: 058
  4. FOSCARBIDOPA\FOSLEVODOPA [Suspect]
     Active Substance: FOSCARBIDOPA\FOSLEVODOPA
     Dosage: BASE RATE INCREASED FROM 0.27ML TO 0.29ML AND HIGH RATE INCREASED FROM 0.30ML TO 0.32ML?FIRST ADM...
     Route: 058
  5. FOSCARBIDOPA\FOSLEVODOPA [Suspect]
     Active Substance: FOSCARBIDOPA\FOSLEVODOPA
     Dosage: BASE RATE INCREASED FROM 0.29ML TO 0.32ML AND HIGH RATE INCREASED FROM 0.32ML TO 0 .35ML, LOW REM...
     Route: 058
  6. FOSCARBIDOPA\FOSLEVODOPA [Suspect]
     Active Substance: FOSCARBIDOPA\FOSLEVODOPA
     Dosage: HIGH 0.35ML REDUCED TO 0.33ML?BASE 0.32ML REDUCED TO 0.30ML?LOW 0.22ML REDUCED TO 0.20M?FIRST ADM...
     Route: 058
  7. FOSCARBIDOPA\FOSLEVODOPA [Suspect]
     Active Substance: FOSCARBIDOPA\FOSLEVODOPA
     Dosage: HIGH 0.33ML INCREASED 0.35ML  ?BASE 0.30ML INCREASED 0.32ML ?LOW 0.20 INCREASED 0.22ML
     Route: 058
     Dates: start: 202508, end: 202508
  8. RIVOTRIL [Concomitant]
     Active Substance: CLONAZEPAM
     Indication: Product used for unknown indication
     Dosage: NIGHT?ROA OTHER
  9. GABAPENTIN [Concomitant]
     Active Substance: GABAPENTIN
     Indication: Product used for unknown indication
     Dosage: ROA OTHER
  10. TAMBOCOR [Concomitant]
     Active Substance: FLECAINIDE ACETATE
     Indication: Product used for unknown indication
     Dosage: ROA OTHER
  11. SINEMET [Concomitant]
     Active Substance: CARBIDOPA\LEVODOPA
     Indication: Product used for unknown indication
     Dosage: PER DOSE, 25/100MG ?@6AM/11AM/2PM/5PM/8PM?ROA OTHER
  12. SINEMET [Concomitant]
     Active Substance: CARBIDOPA\LEVODOPA
     Indication: Product used for unknown indication
     Dosage: PER DOSE, 12.5/50MG ?@6AM/11AM/2PM/5PM/8PM?ROA OTHER

REACTIONS (17)
  - Anxiety [Not Recovered/Not Resolved]
  - Musculoskeletal disorder [Unknown]
  - Bradykinesia [Not Recovered/Not Resolved]
  - Limb discomfort [Unknown]
  - Musculoskeletal stiffness [Not Recovered/Not Resolved]
  - Tremor [Recovered/Resolved]
  - Malaise [Unknown]
  - Dizziness [Unknown]
  - Arthralgia [Not Recovered/Not Resolved]
  - Drug ineffective [Unknown]
  - On and off phenomenon [Not Recovered/Not Resolved]
  - Freezing phenomenon [Recovered/Resolved]
  - Gait disturbance [Recovered/Resolved]
  - Insomnia [Recovered/Resolved]
  - Asthenia [Not Recovered/Not Resolved]
  - Dyskinesia [Unknown]
  - Abnormal dreams [Unknown]

NARRATIVE: CASE EVENT DATE: 20250101
